FAERS Safety Report 19888864 (Version 1)
Quarter: 2021Q3

REPORT INFORMATION
  Report Type: Spontaneous
  Country: NL (occurrence: NL)
  Receive Date: 20210927
  Receipt Date: 20210927
  Transmission Date: 20211014
  Serious: Yes (Congenital Anomaly, Other)
  Sender: FDA-Public Use
  Company Number: NL-ABBVIE-21K-114-4093508-00

PATIENT
  Sex: Male

DRUGS (5)
  1. FOLIUMZUUR [Concomitant]
     Active Substance: FOLIC ACID
     Indication: MATERNAL EXPOSURE TIMING UNSPECIFIED
  2. FERROFUMARAAT [Concomitant]
     Active Substance: FERROUS FUMARATE
     Indication: MATERNAL EXPOSURE TIMING UNSPECIFIED
  3. DEPAKINE [Suspect]
     Active Substance: VALPROATE SODIUM
     Indication: MATERNAL EXPOSURE TIMING UNSPECIFIED
     Route: 064
  4. KEPPRA [Concomitant]
     Active Substance: LEVETIRACETAM
     Indication: MATERNAL EXPOSURE TIMING UNSPECIFIED
  5. FLUOXETINE [Concomitant]
     Active Substance: FLUOXETINE HYDROCHLORIDE
     Indication: MATERNAL EXPOSURE TIMING UNSPECIFIED

REACTIONS (4)
  - Premature baby [Unknown]
  - Single umbilical artery [Unknown]
  - Foetal exposure during pregnancy [Unknown]
  - Unevaluable event [Unknown]
